FAERS Safety Report 5968920-4 (Version None)
Quarter: 2008Q4

REPORT INFORMATION
  Report Type: 
  Country: None (occurrence: None)
  Receive Date: 20081125
  Receipt Date: 20081125
  Transmission Date: 20090506
  Serious: Yes (Life-Threatening, Hospitalization, Other)
  Sender: FDA-Public Use
  Company Number: None

PATIENT
  Age: 56 Year
  Sex: Male
  Weight: 122.4712 kg

DRUGS (1)
  1. NARCAN [Suspect]
     Indication: DRUG TOXICITY
     Dosage: 2MG ONCE OTHER
     Route: 050
     Dates: start: 20081118, end: 20081118

REACTIONS (9)
  - CONVULSION [None]
  - DYSGEUSIA [None]
  - DYSPNOEA [None]
  - HYPOTENSION [None]
  - HYPOVENTILATION [None]
  - LETHARGY [None]
  - MEDICAL DEVICE COMPLICATION [None]
  - OVERDOSE [None]
  - SPEECH DISORDER [None]
